FAERS Safety Report 8927280 (Version 2)
Quarter: 2012Q4

REPORT INFORMATION
  Report Type: 
  Country: FR (occurrence: FR)
  Receive Date: 20121127
  Receipt Date: 20121217
  Transmission Date: 20130627
  Serious: Yes (Hospitalization)
  Sender: FDA-Public Use
  Company Number: FR-JNJFOC-20121110862

PATIENT
  Age: 48 Year
  Sex: Male

DRUGS (3)
  1. ACTIFED [Suspect]
     Indication: NASOPHARYNGITIS
     Route: 048
  2. ACTIFED [Suspect]
     Indication: NASOPHARYNGITIS
     Route: 048
  3. VASOCONSTRICTOR [Suspect]
     Indication: PRODUCT USED FOR UNKNOWN INDICATION
     Route: 065

REACTIONS (1)
  - Cerebrovascular accident [Not Recovered/Not Resolved]
